FAERS Safety Report 8023545-4 (Version None)
Quarter: 2012Q1

REPORT INFORMATION
  Report Type: 
  Country: None (occurrence: None)
  Receive Date: 20120105
  Receipt Date: 20111229
  Transmission Date: 20120608
  Serious: No
  Sender: FDA-Public Use
  Company Number: US-BIOGENIDEC-2011BI049088

PATIENT
  Sex: Female

DRUGS (3)
  1. TYSABRI [Suspect]
     Route: 042
     Dates: start: 20090130, end: 20100113
  2. TYSABRI [Suspect]
     Indication: MULTIPLE SCLEROSIS
     Route: 042
     Dates: start: 20111205
  3. TYSABRI [Suspect]
     Route: 042
     Dates: start: 20100416, end: 20110407

REACTIONS (2)
  - NEURALGIA [None]
  - MUSCULAR WEAKNESS [None]
